FAERS Safety Report 5237196-8 (Version None)
Quarter: 2007Q1

REPORT INFORMATION
  Report Type: 
  Country: None (occurrence: None)
  Receive Date: 20070209
  Receipt Date: 20070130
  Transmission Date: 20070707
  Serious: Yes (Hospitalization)
  Sender: FDA-Public Use
  Company Number: 235837

PATIENT
  Age: 3 Year
  Sex: Male

DRUGS (2)
  1. NUTROPIN [Suspect]
     Indication: HYPOGLYCAEMIA
     Dosage: SEE IMAGE
     Dates: start: 20040101, end: 20061001
  2. NUTROPIN [Suspect]
     Indication: HYPOGLYCAEMIA
     Dosage: SEE IMAGE
     Dates: start: 20061201

REACTIONS (2)
  - CONGENITAL APLASTIC ANAEMIA [None]
  - HYPOGLYCAEMIA [None]
